FAERS Safety Report 7456689-6 (Version None)
Quarter: 2011Q2

REPORT INFORMATION
  Report Type: 
  Country: None (occurrence: None)
  Receive Date: 20110503
  Receipt Date: 20100511
  Transmission Date: 20111010
  Serious: No
  Sender: FDA-Public Use
  Company Number: US-SANOFI-AVENTIS-2010SA027742

PATIENT
  Age: 9 Year
  Sex: Male

DRUGS (3)
  1. APIDRA [Suspect]
     Dosage: USED VIA PUMP
     Route: 058
     Dates: start: 20100401
  2. APIDRA [Suspect]
     Dosage: VIA PUMP
     Route: 058
     Dates: start: 20100501
  3. HUMALOG [Concomitant]

REACTIONS (3)
  - FEELING ABNORMAL [None]
  - BLOOD GLUCOSE INCREASED [None]
  - DRUG INEFFECTIVE [None]
